FAERS Safety Report 23149846 (Version 1)
Quarter: 2023Q4

REPORT INFORMATION
  Report Type: Other
  Country: AT (occurrence: AT)
  Receive Date: 20231106
  Receipt Date: 20231106
  Transmission Date: 20240110
  Serious: Yes (Other)
  Sender: FDA-Public Use
  Company Number: AT-ASTELLAS-2023EU004011

PATIENT
  Age: 1 Month
  Sex: Male

DRUGS (1)
  1. AMPHOTERICIN B [Suspect]
     Active Substance: AMPHOTERICIN B
     Indication: Infection
     Route: 065
     Dates: start: 20230707, end: 20230707

REACTIONS (5)
  - Thrombosis [Unknown]
  - Application site erosion [Unknown]
  - Application site extravasation [Unknown]
  - Application site vesicles [Unknown]
  - Off label use [Unknown]

NARRATIVE: CASE EVENT DATE: 20230707
